FAERS Safety Report 10737201 (Version 2)
Quarter: 2015Q1

REPORT INFORMATION
  Report Type: Spontaneous
  Country: US (occurrence: US)
  Receive Date: 20150126
  Receipt Date: 20150203
  Transmission Date: 20150721
  Serious: Yes (Other)
  Sender: FDA-Public Use
  Company Number: US-TEVA-535716USA

PATIENT
  Sex: Female

DRUGS (1)
  1. COPAXONE [Suspect]
     Active Substance: GLATIRAMER ACETATE
     Indication: MULTIPLE SCLEROSIS
     Dates: start: 19980406

REACTIONS (7)
  - Swelling face [Recovered/Resolved]
  - Heart rate increased [Recovered/Resolved]
  - Chills [Recovered/Resolved]
  - Erythema [Recovered/Resolved]
  - Flushing [Recovered/Resolved]
  - Muscle spasms [Recovered/Resolved]
  - Injection related reaction [Recovered/Resolved]

NARRATIVE: CASE EVENT DATE: 2014
